FAERS Safety Report 9451482 (Version 2)
Quarter: 2013Q3

REPORT INFORMATION
  Report Type: Spontaneous
  Country: CA (occurrence: CA)
  Receive Date: 20130810
  Receipt Date: 20130820
  Transmission Date: 20140515
  Serious: Yes (Other)
  Sender: FDA-Public Use
  Company Number: CA-ROCHE-1258765

PATIENT
  Age: 44 Year
  Sex: Female

DRUGS (5)
  1. XOLAIR [Suspect]
     Indication: ASTHMA
     Route: 058
     Dates: start: 20120920
  2. VENTOLINE [Concomitant]
  3. ADVAIR [Concomitant]
  4. SINGULAIR [Concomitant]
  5. OMNARIS [Concomitant]

REACTIONS (3)
  - Uterine haemorrhage [Not Recovered/Not Resolved]
  - Uterine cyst [Unknown]
  - Uterine neoplasm [Unknown]
